FAERS Safety Report 5718160-9 (Version None)
Quarter: 2008Q2

REPORT INFORMATION
  Report Type: 
  Country: None (occurrence: None)
  Receive Date: 20080425
  Receipt Date: 20080423
  Transmission Date: 20081010
  Serious: Yes (Death, Hospitalization)
  Sender: FDA-Public Use
  Company Number: ES-SANOFI-SYNTHELABO-F01200800638

PATIENT
  Sex: Male

DRUGS (5)
  1. OXALIPLATIN [Suspect]
     Indication: RECTAL CANCER
     Route: 041
     Dates: start: 20080403, end: 20080403
  2. METFORMINA [Concomitant]
     Dates: end: 20080406
  3. REPAGLINIDA [Concomitant]
     Dates: end: 20080406
  4. CAPECITABINE [Suspect]
     Dosage: 3000 MG
     Route: 048
     Dates: start: 20080403
  5. BEVACIZUMAB [Suspect]
     Route: 041
     Dates: start: 20080403, end: 20080403

REACTIONS (5)
  - DEHYDRATION [None]
  - DIABETIC KETOACIDOSIS [None]
  - DIARRHOEA [None]
  - NEUTROPENIA [None]
  - PLATELET COUNT DECREASED [None]
